FAERS Safety Report 6572872-6 (Version None)
Quarter: 2010Q1

REPORT INFORMATION
  Report Type: 
  Country: None (occurrence: None)
  Receive Date: 20100207
  Receipt Date: 20100201
  Transmission Date: 20100710
  Serious: Yes (Hospitalization)
  Sender: FDA-Public Use
  Company Number: US-ELI_LILLY_AND_COMPANY-US201001003523

PATIENT
  Sex: Male

DRUGS (14)
  1. HUMALOG [Suspect]
     Indication: DIABETES MELLITUS
     Dosage: UNK, AS NEEDED
     Dates: start: 20090901
  2. METOLATE [Concomitant]
     Dosage: 100 MG, 2/D
  3. PREDNISONE [Concomitant]
     Dosage: 60 MG, 2/D
  4. GLYBURIDE [Concomitant]
  5. COREG [Concomitant]
  6. ASPIRIN [Concomitant]
  7. PLAVIX [Concomitant]
  8. NIASPAN [Concomitant]
  9. IMDUR [Concomitant]
  10. LASIX [Concomitant]
  11. LIPITOR [Concomitant]
  12. DIGOXIN [Concomitant]
  13. VASOTEC [Concomitant]
  14. ALDACTONE [Concomitant]

REACTIONS (3)
  - CARDIAC FAILURE CONGESTIVE [None]
  - HAEMOGLOBIN DECREASED [None]
  - PLATELET COUNT DECREASED [None]
